FAERS Safety Report 17031402 (Version 2)
Quarter: 2019Q4

REPORT INFORMATION
  Report Type: Spontaneous
  Country: RO (occurrence: RO)
  Receive Date: 20191114
  Receipt Date: 20191125
  Transmission Date: 20200122
  Serious: Yes (Hospitalization, Other)
  Sender: FDA-Public Use
  Company Number: RO-TEVA-2019-RO-1135752

PATIENT
  Sex: Female

DRUGS (5)
  1. MESNA. [Suspect]
     Active Substance: MESNA
     Indication: CHEMOTHERAPY
     Route: 065
     Dates: start: 2018
  2. IFOSFAMIDE. [Suspect]
     Active Substance: IFOSFAMIDE
     Indication: CHEMOTHERAPY
     Route: 065
     Dates: start: 2018
  3. ZARZIO [Suspect]
     Active Substance: FILGRASTIM
     Indication: CHEMOTHERAPY
     Dosage: 30 000 UI/M2 TOTAL DOSE
     Route: 065
     Dates: start: 2018
  4. DOXORUBICIN [Suspect]
     Active Substance: DOXORUBICIN
     Indication: CHEMOTHERAPY
     Route: 065
     Dates: start: 2016
  5. DOXORUBICIN [Suspect]
     Active Substance: DOXORUBICIN
     Route: 065
     Dates: start: 2018

REACTIONS (2)
  - Cardiotoxicity [Unknown]
  - Cardiac failure acute [Unknown]
